FAERS Safety Report 13011389 (Version 2)
Quarter: 2017Q1

REPORT INFORMATION
  Report Type: Spontaneous
  Country: DE (occurrence: DE)
  Receive Date: 20161209
  Receipt Date: 20170117
  Transmission Date: 20170428
  Serious: Yes (Hospitalization)
  Sender: FDA-Public Use
  Company Number: PHHY2016DE167126

PATIENT
  Sex: Female

DRUGS (6)
  1. HIROBRIZ BREEZHALER [Suspect]
     Active Substance: INDACATEROL MALEATE
     Indication: PRODUCT USED FOR UNKNOWN INDICATION
     Dosage: UNK
     Route: 065
     Dates: start: 201403
  2. ULTIBRO BREEZHALER [Suspect]
     Active Substance: GLYCOPYRRONIUM\INDACATEROL
     Indication: EMPHYSEMA
     Dosage: 1 DF, QD
     Route: 065
     Dates: start: 201503, end: 20161130
  3. SEEBRI BREEZHALER [Suspect]
     Active Substance: GLYCOPYRROLATE
     Indication: PRODUCT USED FOR UNKNOWN INDICATION
     Dosage: UNK
     Route: 065
     Dates: start: 201403
  4. ULTIBRO BREEZHALER [Suspect]
     Active Substance: GLYCOPYRRONIUM\INDACATEROL
     Indication: CHRONIC OBSTRUCTIVE PULMONARY DISEASE
     Dosage: 1 DF, QD
     Route: 065
     Dates: start: 201407, end: 201503
  5. ONBREZ BREEZHALER [Suspect]
     Active Substance: INDACATEROL
     Indication: PRODUCT USED FOR UNKNOWN INDICATION
     Dosage: UNK
     Route: 065
     Dates: start: 201403
  6. TOVANOR [Suspect]
     Active Substance: GLYCOPYRROLATE
     Indication: PRODUCT USED FOR UNKNOWN INDICATION
     Dosage: UNK
     Route: 065
     Dates: start: 201403

REACTIONS (18)
  - Cholelithiasis [Recovered/Resolved]
  - Back pain [Recovered/Resolved]
  - Myalgia [Recovered/Resolved]
  - Oropharyngeal discomfort [Recovered/Resolved]
  - Arthralgia [Recovered/Resolved]
  - Dry throat [Recovered/Resolved]
  - Dry mouth [Recovered/Resolved]
  - Skin exfoliation [None]
  - Pain in extremity [None]
  - Epistaxis [Recovered/Resolved]
  - Pain in extremity [Recovered/Resolved]
  - Sinusitis [Recovered/Resolved]
  - Dry skin [None]
  - Dry skin [Not Recovered/Not Resolved]
  - Muscle spasms [Recovered/Resolved]
  - Dyspepsia [Recovered/Resolved]
  - Bone pain [Recovered/Resolved]
  - Arthralgia [None]

NARRATIVE: CASE EVENT DATE: 201503
